FAERS Safety Report 24816030 (Version 1)
Quarter: 2025Q1

REPORT INFORMATION
  Report Type: Spontaneous
  Country: FR (occurrence: FR)
  Receive Date: 20250107
  Receipt Date: 20250107
  Transmission Date: 20250409
  Serious: Yes (Other)
  Sender: MERCK
  Company Number: None

PATIENT
  Age: 76 Year
  Sex: Male
  Weight: 85 kg

DRUGS (18)
  1. SIVEXTRO [Suspect]
     Active Substance: TEDIZOLID PHOSPHATE
     Indication: Endocarditis
     Route: 048
     Dates: start: 20240906, end: 20240920
  2. DAPTOMYCIN [Suspect]
     Active Substance: DAPTOMYCIN
     Indication: Endocarditis
     Route: 042
     Dates: start: 20240826, end: 20240920
  3. PIPERACILLIN SODIUM\TAZOBACTAM SODIUM [Suspect]
     Active Substance: PIPERACILLIN SODIUM\TAZOBACTAM SODIUM
     Indication: Endocarditis
     Route: 042
     Dates: start: 20240826, end: 20240908
  4. AMIODARONE [Concomitant]
     Active Substance: AMIODARONE
  5. ASPIRIN [Concomitant]
     Active Substance: ASPIRIN
  6. BISOPROLOL FUMARATE [Concomitant]
     Active Substance: BISOPROLOL FUMARATE
  7. FUROSEMIDE [Concomitant]
     Active Substance: FUROSEMIDE
  8. IVABRADINE [Concomitant]
     Active Substance: IVABRADINE
  9. LANSOPRAZOLE [Concomitant]
     Active Substance: LANSOPRAZOLE
  10. LACTULOSE [Concomitant]
     Active Substance: LACTULOSE
  11. POTASSIUM [Concomitant]
     Active Substance: POTASSIUM
  12. PRAVASTATIN SODIUM [Concomitant]
     Active Substance: PRAVASTATIN SODIUM
  13. PREGABALIN [Concomitant]
     Active Substance: PREGABALIN
  14. REPAGLINIDE [Concomitant]
     Active Substance: REPAGLINIDE
  15. VILDAGLIPTIN [Concomitant]
     Active Substance: VILDAGLIPTIN
  16. OXYCODONE [Concomitant]
     Active Substance: OXYCODONE
  17. EPOETIN ZETA [Concomitant]
     Active Substance: ERYTHROPOIETIN
  18. HEPARIN CALCIUM [Concomitant]
     Active Substance: HEPARIN CALCIUM

REACTIONS (3)
  - Anaemia [Recovered/Resolved with Sequelae]
  - Platelet count decreased [Recovered/Resolved with Sequelae]
  - Coombs direct test positive [Recovering/Resolving]

NARRATIVE: CASE EVENT DATE: 20240920
